FAERS Safety Report 8181282-X (Version None)
Quarter: 2012Q1

REPORT INFORMATION
  Report Type: 
  Country: None (occurrence: None)
  Receive Date: 20120302
  Receipt Date: 20120222
  Transmission Date: 20120608
  Serious: Yes (Life-Threatening, Hospitalization)
  Sender: FDA-Public Use
  Company Number: JP-PFIZER INC-2012036995

PATIENT
  Age: 56 Year
  Sex: Male
  Weight: 77 kg

DRUGS (3)
  1. ZOSYN [Suspect]
     Indication: PNEUMONIA
     Dosage: 4.5 G, 3X/DAY
     Route: 041
     Dates: start: 20120126, end: 20120206
  2. CLARITHROMYCIN [Concomitant]
     Indication: PNEUMONIA
     Dosage: 400 MG, /DAY
     Route: 048
     Dates: start: 20120126, end: 20120206
  3. MUCOSTA [Concomitant]
     Dosage: 200 MG, /DAY
     Route: 048
     Dates: start: 20120126, end: 20120206

REACTIONS (2)
  - PLATELET COUNT DECREASED [None]
  - EPISTAXIS [None]
